FAERS Safety Report 21459597 (Version 1)
Quarter: 2022Q4

REPORT INFORMATION
  Report Type: Spontaneous
  Country: MX (occurrence: MX)
  Receive Date: 20221014
  Receipt Date: 20221014
  Transmission Date: 20230112
  Serious: Yes (Death, Other)
  Sender: FDA-Public Use
  Company Number: MX-BAXTER-2022BAX021427

PATIENT
  Sex: Male

DRUGS (1)
  1. AMINO ACIDS\DEXTROSE\ELECTROLYTES NOS\SOYBEAN OIL [Suspect]
     Active Substance: AMINO ACIDS\DEXTROSE\ELECTROLYTES NOS\SOYBEAN OIL
     Indication: Nutritional supplementation
     Route: 065

REACTIONS (4)
  - Ill-defined disorder [Fatal]
  - Bile duct stone [Unknown]
  - Abdominal pain [Unknown]
  - Restlessness [Unknown]
